FAERS Safety Report 8334611-8 (Version None)
Quarter: 2012Q2

REPORT INFORMATION
  Report Type: 
  Country: None (occurrence: None)
  Receive Date: 20120503
  Receipt Date: 20120501
  Transmission Date: 20120825
  Serious: No
  Sender: FDA-Public Use
  Company Number: US-PFIZER INC-2012107756

PATIENT
  Age: 77 Year
  Sex: Female

DRUGS (1)
  1. LYRICA [Suspect]
     Dosage: 50 MG, 3X/DAY

REACTIONS (2)
  - FEELING ABNORMAL [None]
  - SOMNOLENCE [None]
